FAERS Safety Report 7904115-2 (Version None)
Quarter: 2011Q4

REPORT INFORMATION
  Report Type: 
  Country: None (occurrence: None)
  Receive Date: 20111109
  Receipt Date: 20111103
  Transmission Date: 20120403
  Serious: Yes (Death, Hospitalization)
  Sender: FDA-Public Use
  Company Number: NZ-CELGENEUS-118-20785-11110243

PATIENT
  Sex: Male

DRUGS (1)
  1. THALIDOMIDE [Suspect]
     Route: 048

REACTIONS (1)
  - GASTRIC PERFORATION [None]
